FAERS Safety Report 7413138-1 (Version None)
Quarter: 2011Q2

REPORT INFORMATION
  Report Type: 
  Country: None (occurrence: None)
  Receive Date: 20110413
  Receipt Date: 20110405
  Transmission Date: 20111010
  Serious: Yes (Other)
  Sender: FDA-Public Use
  Company Number: CHPA2011US04948

PATIENT
  Age: 81 Year
  Sex: Female

DRUGS (4)
  1. LOPRESSOR [Concomitant]
     Dosage: UNK, UNK
  2. BENEFIBER W/ WHEAT DEXTRIN [Suspect]
     Indication: CONSTIPATION
  3. BENEFIBER W/ WHEAT DEXTRIN [Suspect]
     Indication: NUTRITIONAL SUPPORT
     Dosage: 2 TSP, EVERYDAY, IN THE MORNING
     Route: 048
     Dates: end: 20110401
  4. DRUG THERAPY NOS [Concomitant]
     Dosage: UNK, UNK

REACTIONS (2)
  - OFF LABEL USE [None]
  - HEART RATE INCREASED [None]
